FAERS Safety Report 7324170-0 (Version None)
Quarter: 2011Q1

REPORT INFORMATION
  Report Type: 
  Country: None (occurrence: None)
  Receive Date: 20110201
  Receipt Date: 20101208
  Transmission Date: 20110831
  Serious: Yes (Life-Threatening, Hospitalization)
  Sender: FDA-Public Use
  Company Number: AMAG201000418

PATIENT
  Age: 66 Year
  Sex: Female
  Weight: 105.2 kg

DRUGS (15)
  1. HYDRALAZINE HCL [Concomitant]
  2. ALLOPURINOL [Concomitant]
  3. FOLIC ACID [Concomitant]
  4. LASIX [Concomitant]
  5. COUMADIN [Concomitant]
  6. MAGNESIUM OXIDE (MAGNESIUM OXIDE) [Concomitant]
  7. FERAHEME [Suspect]
     Indication: IRON DEFICIENCY ANAEMIA
     Dosage: 510 MG, SINGLE, INTRAVENOUS
     Route: 042
     Dates: start: 20101208, end: 20101208
  8. GLIMEPIRIDE [Concomitant]
  9. AMIODARONE (AMIODARONE HYDROCHLORIDE) [Concomitant]
  10. JANUVIA [Concomitant]
  11. ZAROXOLYN [Concomitant]
  12. MECLIZINE [Concomitant]
  13. PRAVASTATIN [Concomitant]
  14. CARVEDILOL [Concomitant]
  15. CALCIUM + VITAMIN D (CALCIUM, COLECALCIFEROL) [Concomitant]

REACTIONS (1)
  - CARDIO-RESPIRATORY ARREST [None]
